FAERS Safety Report 5028673-3 (Version None)
Quarter: 2006Q2

REPORT INFORMATION
  Report Type: 
  Country: None (occurrence: None)
  Receive Date: 20060501
  Receipt Date: 20060213
  Transmission Date: 20061013
  Serious: No
  Sender: FDA-Public Use
  Company Number: 200610835BWH

PATIENT
  Age: 69 Year
  Sex: Female

DRUGS (12)
  1. NEXAVAR [Suspect]
     Indication: METASTASES TO SPINE
     Dosage: 400 MG, BID, ORAL
     Route: 048
     Dates: start: 20060201, end: 20060212
  2. NEXAVAR [Suspect]
     Indication: METASTATIC RENAL CELL CARCINOMA
     Dosage: 400 MG, BID, ORAL
     Route: 048
     Dates: start: 20060201, end: 20060212
  3. GABAPENTIN [Concomitant]
  4. OXYCONTIN [Concomitant]
  5. MIRALAX [Concomitant]
  6. DULCOLAX [Concomitant]
  7. COSOPT [Concomitant]
  8. XALATAN [Concomitant]
  9. CALTRATE + D [Concomitant]
  10. MULTIVITAMN AND MINERAL SUPPLEMENT [Concomitant]
  11. LASIX [Concomitant]
  12. PROTONIX [Concomitant]

REACTIONS (8)
  - ANOREXIA [None]
  - BODY TEMPERATURE INCREASED [None]
  - DIZZINESS [None]
  - NAUSEA [None]
  - ORAL PAIN [None]
  - PRURITUS [None]
  - RASH MORBILLIFORM [None]
  - VISION BLURRED [None]
